FAERS Safety Report 15305531 (Version 2)
Quarter: 2018Q4

REPORT INFORMATION
  Report Type: Spontaneous
  Country: FR (occurrence: FR)
  Receive Date: 20180822
  Receipt Date: 20181010
  Transmission Date: 20190204
  Serious: Yes (Death, Other)
  Sender: FDA-Public Use
  Company Number: FR-TEVA-2018-FR-945720

PATIENT
  Age: 81 Year
  Sex: Female
  Weight: 90 kg

DRUGS (17)
  1. SPASFON LYOC 160 MG, LYOPHILISAT ORAL [Concomitant]
     Indication: PRODUCT USED FOR UNKNOWN INDICATION
     Route: 065
  2. DULOXETINE (CHLORHYDRATE DE) [Suspect]
     Active Substance: DULOXETINE
     Indication: PRODUCT USED FOR UNKNOWN INDICATION
     Dosage: 60 MILLIGRAM DAILY;
     Route: 048
  3. FORLAX 10 G, POUDRE POUR SOLUTION BUVABLE EN SACHET-DOSE [Concomitant]
     Active Substance: POLYETHYLENE GLYCOL 4000
     Indication: PRODUCT USED FOR UNKNOWN INDICATION
     Route: 048
  4. FLUOXETINE (CHLORHYDRATE DE) [Interacting]
     Active Substance: FLUOXETINE HYDROCHLORIDE
     Indication: DEPRESSION
     Dosage: 20 MILLIGRAM DAILY;
     Route: 048
  5. AMIODARONE (CHLORHYDRATE D^) [Interacting]
     Active Substance: AMIODARONE HYDROCHLORIDE
     Indication: ATRIAL FIBRILLATION
     Dosage: 200 MILLIGRAM DAILY;
     Route: 048
  6. ELIQUIS [Interacting]
     Active Substance: APIXABAN
     Indication: ATRIAL FIBRILLATION
     Dosage: 2 DOSAGE FORMS DAILY;
     Route: 048
     Dates: start: 201609
  7. PARIET 20 MG, COMPRIM? GASTRO-R?SISTANT [Concomitant]
     Active Substance: RABEPRAZOLE SODIUM
     Indication: PRODUCT USED FOR UNKNOWN INDICATION
     Route: 048
  8. ELIQUIS [Interacting]
     Active Substance: APIXABAN
     Indication: CEREBROVASCULAR ACCIDENT PROPHYLAXIS
  9. METFORMINE [Concomitant]
     Active Substance: METFORMIN HYDROCHLORIDE
     Indication: PRODUCT USED FOR UNKNOWN INDICATION
     Dosage: 2 GRAM DAILY;
     Route: 048
  10. LERCANIDIPINE (CHLORHYDRATE DE) [Concomitant]
     Active Substance: LERCANIDIPINE HYDROCHLORIDE
     Indication: PRODUCT USED FOR UNKNOWN INDICATION
     Dosage: 20 MILLIGRAM DAILY;
     Route: 048
  11. FENTANYL. [Concomitant]
     Active Substance: FENTANYL
     Indication: PRODUCT USED FOR UNKNOWN INDICATION
     Route: 062
  12. FUROSEMIDE. [Concomitant]
     Active Substance: FUROSEMIDE
     Indication: PRODUCT USED FOR UNKNOWN INDICATION
     Dosage: 40 MILLIGRAM DAILY;
     Route: 048
  13. XELEVIA 100 MG, COMPRIM? PELLICUL? [Concomitant]
     Indication: PRODUCT USED FOR UNKNOWN INDICATION
     Dosage: 1 DOSAGE FORMS DAILY;
     Route: 048
  14. ENALAPRIL (MALEATE D^) [Concomitant]
     Active Substance: ENALAPRIL MALEATE
     Indication: PRODUCT USED FOR UNKNOWN INDICATION
     Dosage: 20 MILLIGRAM DAILY;
     Route: 048
  15. PARACETAMOL [Concomitant]
     Active Substance: ACETAMINOPHEN
     Dosage: 3 GRAM DAILY;
     Route: 048
  16. POLYOXYETHYLEN [Concomitant]
     Indication: PRODUCT USED FOR UNKNOWN INDICATION
     Route: 065
  17. ZOPICLONE [Concomitant]
     Active Substance: ZOPICLONE
     Indication: PRODUCT USED FOR UNKNOWN INDICATION
     Dosage: 7.5 MILLIGRAM DAILY;
     Route: 048

REACTIONS (3)
  - Haematemesis [Fatal]
  - Gastrointestinal haemorrhage [Fatal]
  - Drug interaction [Fatal]

NARRATIVE: CASE EVENT DATE: 20180618
